FAERS Safety Report 11247274 (Version 1)
Quarter: 2015Q3

REPORT INFORMATION
  Report Type: Spontaneous
  Country: FR (occurrence: None)
  Receive Date: 20150706
  Receipt Date: 20150706
  Transmission Date: 20151125
  Serious: Yes (Death, Other)
  Sender: FDA-Public Use
  Company Number: CO-UX-FR-2015-012

PATIENT
  Age: 68 Year
  Sex: Male

DRUGS (15)
  1. XATRAL [Suspect]
     Active Substance: ALFUZOSIN
     Indication: PRODUCT USED FOR UNKNOWN INDICATION
     Route: 048
     Dates: start: 20150503
  2. SMOFKABIVEN (GLYCINE, ALANINE, SERINE, THYROSINE, LEUCINE, METHIONINE, PHENYLANINE, HISTIDINE, VALINE, THEONINE, TRYPTOPHA, L-ISOLEUCINE, ARGININE, TAURINE, SODIUM ACETATE, PROLINE, SODIUM GLUCEROPPHOSPHATE, GLUCOSE MONOHYDRATE, POTASSIUM CHLORIDE, LYSINE ACETATE, FISH OIL, MEDIUM-CHAIN TRIGLYCERIDES, GLYCINE MAX SEED OIL, OLEA EUROPEA OIL) [Concomitant]
  3. RIFAMPICINE (RIFAMPICIN) [Suspect]
     Active Substance: RIFAMPIN
     Indication: PRODUCT USED FOR UNKNOWN INDICATION
     Dates: start: 20150507
  4. PARACETAMOL (PARACETAMOL) [Suspect]
     Active Substance: ACETAMINOPHEN
     Indication: PRODUCT USED FOR UNKNOWN INDICATION
  5. N-ACETYLCYSTEINE (ACETYLCYSTEINE) [Concomitant]
  6. INEXIUM (ESOMEPRAZOLE MAGNESIUM) [Concomitant]
     Active Substance: ESOMEPRAZOLE MAGNESIUM
  7. LASIX [Concomitant]
     Active Substance: FUROSEMIDE
  8. NORSET (MIRTAZAPINE) [Suspect]
     Active Substance: MIRTAZAPINE
     Indication: PRODUCT USED FOR UNKNOWN INDICATION
     Route: 048
     Dates: start: 20150503
  9. GLUCOSE (GLUCOSE) [Concomitant]
  10. PHOCYTAN (GLUCOSE 1-PHOSPHATE DISODIUM) [Concomitant]
  11. ZOVIRAX [Concomitant]
     Active Substance: ACYCLOVIR
  12. AMOXICILLIN (AMOXICILLIN TRIHYDRATE) [Suspect]
     Active Substance: AMOXICILLIN
     Indication: PRODUCT USED FOR UNKNOWN INDICATION
     Dates: start: 20150420
  13. NEODEX (DEXAMETHASONE ACETATE) [Concomitant]
     Active Substance: DEXAMETHASONE ACETATE
  14. PHOSPHONEUROS (MAGNESIUM GLYCEROPHOSPHATE, SODIUM PHOSPHATE DIBASC, PHOSPHORIC ACID, CALCIUM PHOSPHATE MONOBASIC) [Concomitant]
  15. REVLIMID [Concomitant]
     Active Substance: LENALIDOMIDE

REACTIONS (1)
  - Acute hepatic failure [None]

NARRATIVE: CASE EVENT DATE: 20150510
